FAERS Safety Report 25329452 (Version 1)
Quarter: 2025Q2

REPORT INFORMATION
  Report Type: Spontaneous
  Country: GB (occurrence: GB)
  Receive Date: 20250519
  Receipt Date: 20250519
  Transmission Date: 20250716
  Serious: Yes (Other)
  Sender: TEVA
  Company Number: None

PATIENT
  Age: 56 Year
  Sex: Female

DRUGS (1)
  1. BISOPROLOL [Suspect]
     Active Substance: BISOPROLOL
     Indication: Atrial fibrillation
     Route: 065
     Dates: end: 20250506

REACTIONS (7)
  - Dyspnoea [Recovered/Resolved]
  - Joint swelling [Recovered/Resolved]
  - Abdominal distension [Recovered/Resolved]
  - Peripheral swelling [Recovered/Resolved]
  - Heart rate decreased [Recovered/Resolved]
  - Poor quality sleep [Recovered/Resolved]
  - Vomiting [Recovered/Resolved]
